FAERS Safety Report 25656036 (Version 2)
Quarter: 2025Q3

REPORT INFORMATION
  Report Type: Spontaneous
  Country: US (occurrence: US)
  Receive Date: 20250807
  Receipt Date: 20250813
  Transmission Date: 20251021
  Serious: Yes (Hospitalization, Other)
  Sender: PFIZER
  Company Number: US-MLMSERVICE-20250730-PI591074-00201-2

PATIENT
  Age: 49 Year
  Sex: Female

DRUGS (18)
  1. LIDOCAINE HYDROCHLORIDE [Suspect]
     Active Substance: LIDOCAINE HYDROCHLORIDE
     Indication: Ventricular arrhythmia
     Route: 042
  2. HYDROXYCHLOROQUINE [Suspect]
     Active Substance: HYDROXYCHLOROQUINE
     Indication: Neuropsychiatric lupus
     Route: 048
  3. RITUXIMAB [Concomitant]
     Active Substance: RITUXIMAB
  4. PREDNISONE [Concomitant]
     Active Substance: PREDNISONE
  5. OXYGEN [Concomitant]
     Active Substance: OXYGEN
     Route: 045
  6. SODIUM CHLORIDE [Concomitant]
     Active Substance: SODIUM CHLORIDE
     Route: 042
  7. SODIUM CHLORIDE [Concomitant]
     Active Substance: SODIUM CHLORIDE
     Route: 042
  8. NOREPINEPHRINE [Concomitant]
     Active Substance: NOREPINEPHRINE
  9. DIAZEPAM [Concomitant]
     Active Substance: DIAZEPAM
     Route: 042
  10. DIAZEPAM [Concomitant]
     Active Substance: DIAZEPAM
     Route: 042
  11. EPINEPHRINE [Concomitant]
     Active Substance: EPINEPHRINE
  12. SODIUM BICARBONATE [Concomitant]
     Active Substance: SODIUM BICARBONATE
     Indication: Electrocardiogram QRS complex prolonged
  13. KCL [Concomitant]
     Active Substance: POTASSIUM CHLORIDE
     Indication: Electrocardiogram QRS complex prolonged
     Route: 042
  14. MAGNESIUM SULFATE [Concomitant]
     Active Substance: MAGNESIUM SULFATE
     Indication: Electrocardiogram QRS complex prolonged
     Route: 042
  15. HYDROCORTISONE [Concomitant]
     Active Substance: HYDROCORTISONE
     Indication: Electrocardiogram QRS complex prolonged
     Route: 042
  16. VASOPRESSIN [Concomitant]
     Active Substance: VASOPRESSIN
  17. PHENYLEPHRINE [Concomitant]
     Active Substance: PHENYLEPHRINE
  18. DOPAMINE [Concomitant]
     Active Substance: DOPAMINE HYDROCHLORIDE

REACTIONS (1)
  - Methaemoglobinaemia [Recovered/Resolved]
